FAERS Safety Report 9257129 (Version 1)
Quarter: 2013Q1

REPORT INFORMATION
  Report Type: Spontaneous
  Country: US (occurrence: None)
  Receive Date: 20121212
  Receipt Date: 20121212
  Transmission Date: 20140127
  Serious: No
  Sender: FDA-Public Use
  Company Number: 1209USA012025

PATIENT
  Age: 54 Year
  Sex: Male
  Weight: 92.1 kg

DRUGS (3)
  1. PEGINTRON [Suspect]
     Indication: HEPATITIS C
     Dates: start: 20120913
  2. RIBAVIRIN [Suspect]
     Indication: HEPATITIS C
     Dates: start: 20120913
  3. VICTRELIS [Suspect]
     Indication: HEPATITIS C
     Dosage: UNK, ORAL
     Route: 048
     Dates: start: 20121012

REACTIONS (10)
  - Feeling hot [None]
  - Chills [None]
  - Fatigue [None]
  - Dry skin [None]
  - Weight decreased [None]
  - Malaise [None]
  - Fatigue [None]
  - Pruritus [None]
  - Dysgeusia [None]
  - Dry mouth [None]
